FAERS Safety Report 15279919 (Version 1)
Quarter: 2018Q3

REPORT INFORMATION
  Report Type: Spontaneous
  Country: US (occurrence: US)
  Receive Date: 20180730
  Receipt Date: 20180730
  Transmission Date: 20181010
  Serious: Yes (Death)
  Sender: FDA-Public Use
  Company Number: None

PATIENT
  Age: 82 Year
  Sex: Female
  Weight: 67.5 kg

DRUGS (20)
  1. VITAMIN E COMPLEX [Concomitant]
  2. VITAMIN B12 [Concomitant]
     Active Substance: CYANOCOBALAMIN
  3. DRONABINOL. [Concomitant]
     Active Substance: DRONABINOL
  4. LISINOPRIL. [Concomitant]
     Active Substance: LISINOPRIL
  5. PROTONIX [Concomitant]
     Active Substance: PANTOPRAZOLE SODIUM
  6. DULCOLAX NOS [Concomitant]
     Active Substance: BISACODYL OR DOCUSATE SODIUM
  7. MELATONIN [Concomitant]
     Active Substance: MELATONIN
  8. AMOXICILLIN. [Concomitant]
     Active Substance: AMOXICILLIN
  9. MEGESTROL [Concomitant]
     Active Substance: MEGESTROL
  10. REVLIMID [Concomitant]
     Active Substance: LENALIDOMIDE
  11. DOXYCYCLINE. [Concomitant]
     Active Substance: DOXYCYCLINE
  12. FUROSEMIDE. [Concomitant]
     Active Substance: FUROSEMIDE
  13. MECLIZINE [Concomitant]
     Active Substance: MECLIZINE HYDROCHLORIDE
  14. TRAMADOL. [Concomitant]
     Active Substance: TRAMADOL
  15. CARVEDILOL. [Concomitant]
     Active Substance: CARVEDILOL
  16. ACETAMINOPHEN. [Concomitant]
     Active Substance: ACETAMINOPHEN
  17. AMBIEN [Concomitant]
     Active Substance: ZOLPIDEM TARTRATE
  18. VITAMIN D3 [Concomitant]
     Active Substance: CHOLECALCIFEROL
  19. PROMACTA [Suspect]
     Active Substance: ELTROMBOPAG OLAMINE
     Indication: MYELODYSPLASTIC SYNDROME
     Route: 048
     Dates: start: 20180529, end: 20180727
  20. TEMAZEPAM. [Concomitant]
     Active Substance: TEMAZEPAM

REACTIONS (1)
  - Death [None]

NARRATIVE: CASE EVENT DATE: 20180727
